FAERS Safety Report 15466894 (Version 1)
Quarter: 2018Q4

REPORT INFORMATION
  Report Type: Spontaneous
  Country: GB (occurrence: GB)
  Receive Date: 20181005
  Receipt Date: 20181005
  Transmission Date: 20190204
  Serious: Yes (Hospitalization, Other)
  Sender: FDA-Public Use
  Company Number: GB-TEVA-2018-GB-961143

PATIENT
  Age: 31 Year
  Sex: Female
  Weight: 57.5 kg

DRUGS (2)
  1. BOTOX [Concomitant]
     Active Substance: ONABOTULINUMTOXINA
  2. CABERGOLINE. [Suspect]
     Active Substance: CABERGOLINE
     Indication: BLOOD PROLACTIN INCREASED
     Dosage: 1 DOSAGE FORMS DAILY;
     Route: 048
     Dates: start: 20180902, end: 20180905

REACTIONS (8)
  - Dizziness [Not Recovered/Not Resolved]
  - Hypotension [Not Recovered/Not Resolved]
  - Nausea [Not Recovered/Not Resolved]
  - Tremor [Not Recovered/Not Resolved]
  - Malaise [Not Recovered/Not Resolved]
  - Angina pectoris [Not Recovered/Not Resolved]
  - Syncope [Not Recovered/Not Resolved]
  - Breast pain [Not Recovered/Not Resolved]

NARRATIVE: CASE EVENT DATE: 20180906
